FAERS Safety Report 4880562-0 (Version None)
Quarter: 2006Q1

REPORT INFORMATION
  Report Type: 
  Country: None (occurrence: None)
  Receive Date: 20060113
  Receipt Date: 20051003
  Transmission Date: 20060701
  Serious: Yes (Other)
  Sender: FDA-Public Use
  Company Number: US-MERCK-0510USA02586

PATIENT
  Age: 63 Year
  Sex: Male
  Weight: 89 kg

DRUGS (3)
  1. VIOXX [Suspect]
     Indication: ARTHRITIS
     Route: 048
     Dates: start: 20020704, end: 20020715
  2. VIOXX [Suspect]
     Indication: BACK PAIN
     Route: 048
     Dates: start: 20020704, end: 20020715
  3. ACETAMINOPHEN [Concomitant]
     Route: 065

REACTIONS (1)
  - ISCHAEMIC STROKE [None]
